FAERS Safety Report 6612436-9 (Version None)
Quarter: 2010Q1

REPORT INFORMATION
  Report Type: 
  Country: None (occurrence: None)
  Receive Date: 20100303
  Receipt Date: 20100225
  Transmission Date: 20100710
  Serious: Yes (Other)
  Sender: FDA-Public Use
  Company Number: PHEH2010US02747

PATIENT

DRUGS (1)
  1. FEMARA [Suspect]
     Dosage: 90 TABLETS IN ONE MONTH

REACTIONS (2)
  - ACCIDENTAL OVERDOSE [None]
  - CONFUSIONAL STATE [None]
